FAERS Safety Report 5939749-8 (Version None)
Quarter: 2008Q4

REPORT INFORMATION
  Report Type: 
  Country: None (occurrence: None)
  Receive Date: 20081031
  Receipt Date: 20081031
  Transmission Date: 20090506
  Serious: Yes (Other)
  Sender: FDA-Public Use
  Company Number: None

PATIENT
  Age: 43 Year
  Sex: Male
  Weight: 63.9572 kg

DRUGS (1)
  1. CIPROFLOXACIN HCL [Suspect]
     Indication: PROSTATITIS
     Dosage: 500ML TWICE DAILY PO
     Route: 048
     Dates: start: 20081011, end: 20081025

REACTIONS (4)
  - MUSCULOSKELETAL PAIN [None]
  - MYALGIA [None]
  - NEUROPATHY PERIPHERAL [None]
  - TENDON PAIN [None]
